FAERS Safety Report 8260990-6 (Version None)
Quarter: 2012Q2

REPORT INFORMATION
  Report Type: 
  Country: None (occurrence: None)
  Receive Date: 20120405
  Receipt Date: 20120330
  Transmission Date: 20120825
  Serious: No
  Sender: FDA-Public Use
  Company Number: US-PFIZER INC-2012082214

PATIENT
  Sex: Male
  Weight: 11.338 kg

DRUGS (2)
  1. PEDIATRIC ADVIL [Suspect]
     Indication: PYREXIA
  2. PEDIATRIC ADVIL [Suspect]
     Indication: PAIN
     Dosage: 50MG/1.25ML, 2X/DAY
     Route: 048
     Dates: start: 20120329

REACTIONS (1)
  - RASH [None]
